FAERS Safety Report 7560600-7 (Version None)
Quarter: 2011Q2

REPORT INFORMATION
  Report Type: 
  Country: None (occurrence: None)
  Receive Date: 20110621
  Receipt Date: 20110302
  Transmission Date: 20111010
  Serious: Yes (Hospitalization)
  Sender: FDA-Public Use
  Company Number: US-ASTRAZENECA-2011SE11634

PATIENT
  Sex: Female

DRUGS (3)
  1. ENTOCORT EC [Suspect]
     Route: 048
     Dates: start: 20100901
  2. ENTOCORT EC [Suspect]
     Indication: CROHN'S DISEASE
     Route: 048
     Dates: start: 20060101
  3. ENTOCORT EC [Suspect]
     Route: 048

REACTIONS (2)
  - INTESTINAL OBSTRUCTION [None]
  - VOMITING [None]
